FAERS Safety Report 5734867-1 (Version None)
Quarter: 2008Q2

REPORT INFORMATION
  Report Type: 
  Country: None (occurrence: None)
  Receive Date: 20080512
  Receipt Date: 20080507
  Transmission Date: 20081010
  Serious: Yes (Other)
  Sender: FDA-Public Use
  Company Number: A0726787A

PATIENT
  Sex: Female

DRUGS (4)
  1. WELLBUTRIN SR [Suspect]
     Indication: DEPRESSION
     Dosage: 350MG PER DAY
     Route: 048
     Dates: start: 20040101, end: 20080101
  2. BUPROPION HYDROCHLORIDE [Suspect]
     Indication: DEPRESSION
     Dosage: 37.5MG TWICE PER DAY
     Route: 048
     Dates: start: 20080101
  3. LEVOXYL [Concomitant]
  4. CYTOMEL [Concomitant]

REACTIONS (4)
  - BLOOD GLUCOSE INCREASED [None]
  - CARDIAC DISORDER [None]
  - HEADACHE [None]
  - HYPERTHYROIDISM [None]
